FAERS Safety Report 6012754-1 (Version None)
Quarter: 2008Q4

REPORT INFORMATION
  Report Type: 
  Country: None (occurrence: None)
  Receive Date: 20081217
  Receipt Date: 20081201
  Transmission Date: 20090506
  Serious: Yes (Hospitalization)
  Sender: FDA-Public Use
  Company Number: 2008PL000272

PATIENT
  Age: 63 Year
  Sex: Female

DRUGS (7)
  1. IMURAN [Suspect]
     Indication: COLITIS ULCERATIVE
  2. INFLIXIMAB [Suspect]
     Indication: COLITIS ULCERATIVE
     Dosage: QM; IV
     Route: 042
  3. BALSALAZIDE DISODIUM [Suspect]
     Indication: COLITIS ULCERATIVE
  4. HYDROCORTISONE ENEMA [Concomitant]
  5. PREDNISONE [Concomitant]
  6. IBANDRONATE SODIUM [Concomitant]
  7. CONJUGATED ESTROGENS [Concomitant]

REACTIONS (3)
  - DRUG HYPERSENSITIVITY [None]
  - EOSINOPHILIC PNEUMONIA [None]
  - INTERSTITIAL LUNG DISEASE [None]
